FAERS Safety Report 15938562 (Version 1)
Quarter: 2019Q1

REPORT INFORMATION
  Report Type: Spontaneous
  Country: US (occurrence: US)
  Receive Date: 20190208
  Receipt Date: 20190208
  Transmission Date: 20190417
  Serious: No
  Sender: FDA-Public Use
  Company Number: US-ROCHE-2230422

PATIENT
  Age: 75 Year
  Sex: Female

DRUGS (2)
  1. XOLAIR [Suspect]
     Active Substance: OMALIZUMAB
     Indication: PRODUCT USED FOR UNKNOWN INDICATION
     Dosage: 150MG SOL INJ
     Route: 058
     Dates: start: 201807
  2. XOLAIR [Suspect]
     Active Substance: OMALIZUMAB
     Dosage: 150MG SOL INJ
     Route: 058
     Dates: start: 20180828

REACTIONS (2)
  - Infection parasitic [Unknown]
  - Enterobiasis [Unknown]

NARRATIVE: CASE EVENT DATE: 20181114
